FAERS Safety Report 8667002 (Version 3)
Quarter: 2013Q4

REPORT INFORMATION
  Report Type: Report from Study
  Country: AU (occurrence: AU)
  Receive Date: 20120716
  Receipt Date: 20131210
  Transmission Date: 20140711
  Serious: Yes (Other)
  Sender: FDA-Public Use
  Company Number: AU-ROCHE-1087795

PATIENT
  Age: 76 Year
  Sex: Female

DRUGS (1)
  1. ACTEMRA [Suspect]
     Indication: RHEUMATOID ARTHRITIS
     Route: 042
     Dates: start: 20100408

REACTIONS (5)
  - Constipation [Unknown]
  - Haemorrhoidal haemorrhage [Unknown]
  - Frequent bowel movements [Unknown]
  - Intestinal obstruction [Recovered/Resolved]
  - Diarrhoea [Recovered/Resolved]
